FAERS Safety Report 4527223-5 (Version None)
Quarter: 2004Q4

REPORT INFORMATION
  Report Type: 
  Country: None (occurrence: None)
  Receive Date: 20041215
  Receipt Date: 20041125
  Transmission Date: 20050328
  Serious: Yes (Hospitalization, Other)
  Sender: FDA-Public Use
  Company Number: PHBS2004JP15854

PATIENT
  Age: 10 Year
  Sex: Female

DRUGS (5)
  1. PREDNISONE [Concomitant]
     Indication: GRAFT VERSUS HOST DISEASE
  2. FK 506 [Suspect]
  3. CYCLOSPORINE [Suspect]
     Indication: STEM CELL TRANSPLANT
     Route: 065
  4. CYCLOPHOSPHAMIDE [Concomitant]
     Indication: STEM CELL TRANSPLANT
  5. IRRADIATION [Concomitant]

REACTIONS (8)
  - ACUTE MYELOID LEUKAEMIA RECURRENT [None]
  - COUGH [None]
  - DYSPNOEA [None]
  - ENCEPHALOPATHY [None]
  - GRAFT VERSUS HOST DISEASE [None]
  - OBLITERATIVE BRONCHIOLITIS [None]
  - PNEUMOMEDIASTINUM [None]
  - SUBCUTANEOUS EMPHYSEMA [None]
